FAERS Safety Report 14070125 (Version 2)
Quarter: 2017Q4

REPORT INFORMATION
  Report Type: Spontaneous
  Country: FR (occurrence: FR)
  Receive Date: 20171010
  Receipt Date: 20171218
  Transmission Date: 20180321
  Serious: Yes (Other)
  Sender: FDA-Public Use
  Company Number: FR-BAYER-2017-187774

PATIENT
  Age: 31 Year
  Sex: Female
  Weight: 65 kg

DRUGS (1)
  1. MIRENA [Suspect]
     Active Substance: LEVONORGESTREL
     Indication: CONTRACEPTION
     Dosage: 20 MCG/24HR, CONT
     Route: 015

REACTIONS (7)
  - Libido decreased [Recovered/Resolved]
  - Occipital neuralgia [Recovered/Resolved]
  - Migraine [Recovered/Resolved]
  - Hypertrichosis [Recovered/Resolved]
  - Breast cancer [Not Recovered/Not Resolved]
  - Depression [Recovered/Resolved]
  - Mood swings [Recovered/Resolved]

NARRATIVE: CASE EVENT DATE: 2000
